FAERS Safety Report 8979763 (Version 1)
Quarter: 2012Q4

REPORT INFORMATION
  Report Type: 
  Country: US (occurrence: US)
  Receive Date: 20121221
  Receipt Date: 20121221
  Transmission Date: 20130627
  Serious: Yes (Hospitalization)
  Sender: FDA-Public Use
  Company Number: US-ASTRAZENECA-2012SE93461

PATIENT
  Age: 84 Year
  Sex: Female
  Weight: 60.8 kg

DRUGS (11)
  1. PULMICORT RESPULES [Suspect]
     Indication: ASTHMA
     Route: 055
     Dates: end: 201103
  2. PULMICORT RESPULES [Suspect]
     Indication: ASTHMA
     Route: 055
     Dates: start: 201103, end: 20121206
  3. PULMICORT RESPULES [Suspect]
     Indication: ASTHMA
     Route: 055
     Dates: start: 20121206
  4. METOPROLOL [Suspect]
     Indication: HYPERTENSION
     Route: 048
     Dates: start: 1973
  5. FUROSEMIDE [Concomitant]
     Route: 048
  6. SIMVASTATIN [Concomitant]
     Indication: BLOOD CHOLESTEROL
     Route: 048
     Dates: start: 1973
  7. ALBUTEROL SULFATE [Concomitant]
     Indication: ASTHMA PROPHYLAXIS
     Dosage: BID
     Route: 055
  8. PRO AIR [Concomitant]
     Dosage: RESQUE INHALER, 2 PUFFS PRN
     Route: 055
  9. ASPIRIN [Concomitant]
     Route: 048
     Dates: start: 2011
  10. CALCIUM [Concomitant]
     Route: 048
     Dates: start: 2011
  11. METFORMIN [Concomitant]
     Indication: GLUCOSE TOLERANCE IMPAIRED
     Route: 048

REACTIONS (3)
  - Dyspnoea [Recovered/Resolved]
  - Body height decreased [Unknown]
  - Off label use [Unknown]
